FAERS Safety Report 8527963 (Version 4)
Quarter: 2014Q1

REPORT INFORMATION
  Report Type: Report from Study
  Country: BR (occurrence: BR)
  Receive Date: 20120424
  Receipt Date: 20140211
  Transmission Date: 20141002
  Serious: Yes (Other)
  Sender: FDA-Public Use
  Company Number: BR-ROCHE-1059564

PATIENT
  Sex: Female
  Weight: 85 kg

DRUGS (13)
  1. ACTEMRA [Suspect]
     Indication: RHEUMATOID ARTHRITIS
     Route: 042
     Dates: start: 20110428
  2. ACTEMRA [Suspect]
     Dosage: THE MOST RECENT INFUSION WAS CARRIED OUT ON 14-MAY-2013
     Route: 042
     Dates: start: 201305
  3. ACTEMRA [Suspect]
     Route: 065
     Dates: start: 201312
  4. ACTEMRA [Suspect]
     Route: 065
     Dates: end: 2013
  5. PURAN T4 [Concomitant]
  6. FUCUS VESICULOSUS [Concomitant]
     Route: 065
  7. CASCARA SAGRADA [Concomitant]
     Route: 065
  8. ARTICHOKE [Concomitant]
     Route: 065
  9. SPIRULINA [Concomitant]
     Route: 065
  10. VALERIAN [Concomitant]
     Route: 065
  11. VITAMIN C [Concomitant]
  12. GLUCOSAMINE SULFATE [Concomitant]
  13. ALLEGRA [Concomitant]
     Indication: PREMEDICATION
     Route: 065

REACTIONS (15)
  - Weight increased [Recovering/Resolving]
  - Breast mass [Not Recovered/Not Resolved]
  - Swelling [Not Recovered/Not Resolved]
  - Fatigue [Recovering/Resolving]
  - Nasopharyngitis [Not Recovered/Not Resolved]
  - Blood triglycerides increased [Not Recovered/Not Resolved]
  - Pain [Unknown]
  - Insomnia [Unknown]
  - Spinal disorder [Unknown]
  - Lacrimation decreased [Unknown]
  - Aptyalism [Unknown]
  - Rheumatoid arthritis [Recovering/Resolving]
  - Pain [Unknown]
  - No therapeutic response [Unknown]
  - Incorrect dose administered [Unknown]
